FAERS Safety Report 12807790 (Version 1)
Quarter: 2016Q4

REPORT INFORMATION
  Report Type: Spontaneous
  Country: US (occurrence: US)
  Receive Date: 20161004
  Receipt Date: 20161004
  Transmission Date: 20170207
  Serious: No
  Sender: FDA-Public Use
  Company Number: US-AMGEN-USASP2016068011

PATIENT

DRUGS (2)
  1. XGEVA [Suspect]
     Active Substance: DENOSUMAB
     Indication: PRODUCT USED FOR UNKNOWN INDICATION
     Dosage: UNK
     Route: 065
  2. XELODA [Concomitant]
     Active Substance: CAPECITABINE
     Dosage: UNK

REACTIONS (3)
  - Adverse event [Unknown]
  - Malaise [Unknown]
  - Condition aggravated [Unknown]
